FAERS Safety Report 4875920-4 (Version None)
Quarter: 2006Q1

REPORT INFORMATION
  Report Type: 
  Country: None (occurrence: None)
  Receive Date: 20060106
  Receipt Date: 20051228
  Transmission Date: 20060701
  Serious: Yes (Hospitalization)
  Sender: FDA-Public Use
  Company Number: 204313

PATIENT
  Age: 44 Year
  Sex: Female
  Weight: 72.5755 kg

DRUGS (24)
  1. AVONEX [Suspect]
     Indication: MULTIPLE SCLEROSIS
     Dosage: 30 UG; QW; IM
     Route: 030
     Dates: start: 20040326
  2. MULTIVITAMIN [Concomitant]
  3. OXYBUTYNIN [Concomitant]
  4. DOCUSATE SODIUM [Concomitant]
  5. ACETAMINOPHEN [Concomitant]
  6. QUETIAPINE FUMARATE [Concomitant]
  7. DICLOFENAC [Concomitant]
  8. PREVACID [Concomitant]
  9. LIQUID TEARS [Concomitant]
  10. ASPIRIN [Concomitant]
  11. CIPROFLOXACIN [Concomitant]
  12. CITALOPRAM HYDROBROMIDE [Concomitant]
  13. CLOPIDOGREL [Concomitant]
  14. CYCLOBENZAPRINE HCL [Concomitant]
  15. DIAZEPAM [Concomitant]
  16. DICLOFENAC SODIUM [Concomitant]
  17. HYDROCODONE BITARTRATE [Concomitant]
  18. LISINOPRIL [Concomitant]
  19. METHYL SALICYLATE [Concomitant]
  20. METOPROLOL [Concomitant]
  21. NITROGLYCERIN [Concomitant]
  22. NORTRIPTYLINE HCL [Concomitant]
  23. OMEPRAZOLE [Concomitant]
  24. AMOXICILLIN [Concomitant]

REACTIONS (41)
  - ACUTE MYOCARDIAL INFARCTION [None]
  - ALANINE AMINOTRANSFERASE INCREASED [None]
  - AMNESIA [None]
  - ANXIETY [None]
  - ARTHRITIS [None]
  - ASPARTATE AMINOTRANSFERASE INCREASED [None]
  - BLOOD CHOLESTEROL INCREASED [None]
  - BLOOD GLUCOSE INCREASED [None]
  - BLOOD SODIUM INCREASED [None]
  - BLOOD TRIGLYCERIDES INCREASED [None]
  - BLOOD UREA INCREASED [None]
  - CARDIAC VALVE DISEASE [None]
  - CORONARY ARTERY DISEASE [None]
  - CORONARY ARTERY OCCLUSION [None]
  - CORONARY ARTERY STENOSIS [None]
  - COUGH [None]
  - CREPITATIONS [None]
  - DEAFNESS UNILATERAL [None]
  - DEPRESSION [None]
  - FALL [None]
  - FATIGUE [None]
  - HALLUCINATION, VISUAL [None]
  - HIGH DENSITY LIPOPROTEIN DECREASED [None]
  - HYPERTENSION [None]
  - INFLUENZA LIKE ILLNESS [None]
  - INSOMNIA [None]
  - LOW DENSITY LIPOPROTEIN INCREASED [None]
  - LYMPHOCYTE PERCENTAGE DECREASED [None]
  - LYMPHOCYTE PERCENTAGE INCREASED [None]
  - MEAN CELL HAEMOGLOBIN INCREASED [None]
  - MUSCULAR WEAKNESS [None]
  - MUSCULOSKELETAL STIFFNESS [None]
  - RED CELL DISTRIBUTION WIDTH INCREASED [None]
  - RESPIRATORY DISORDER [None]
  - SINUS BRADYCARDIA [None]
  - SOMNOLENCE [None]
  - TOTAL CHOLESTEROL/HDL RATIO INCREASED [None]
  - URINARY TRACT INFECTION [None]
  - WEIGHT INCREASED [None]
  - WHEEZING [None]
  - WHITE BLOOD CELL COUNT INCREASED [None]
